FAERS Safety Report 5747205-5 (Version None)
Quarter: 2008Q2

REPORT INFORMATION
  Report Type: 
  Country: None (occurrence: None)
  Receive Date: 20080520
  Receipt Date: 20080507
  Transmission Date: 20081010
  Serious: Yes (Other)
  Sender: FDA-Public Use
  Company Number: 2007BI026065

PATIENT
  Age: 58 Year
  Sex: Female

DRUGS (9)
  1. AVONEX [Suspect]
     Indication: MULTIPLE SCLEROSIS
     Dosage: 30 UG; QW; IM
     Route: 030
     Dates: start: 20040101, end: 20071012
  2. TOPICAL CREAMS (NOS) [Concomitant]
  3. EFFEXOR [Concomitant]
  4. FOLIC ACID [Concomitant]
  5. METHOTREXATE [Concomitant]
  6. NASACORT [Concomitant]
  7. PREMARIN [Concomitant]
  8. RANITIDINE [Concomitant]
  9. TRAMADOL HCL [Concomitant]

REACTIONS (1)
  - BREAST CANCER FEMALE [None]
